FAERS Safety Report 26020638 (Version 1)
Quarter: 2025Q4

REPORT INFORMATION
  Report Type: Spontaneous
  Country: US (occurrence: None)
  Receive Date: 20251107
  Receipt Date: 20251107
  Transmission Date: 20260118
  Serious: Yes (Death)
  Sender: FDA-CTU
  Company Number: None

PATIENT
  Age: 80 Year
  Sex: Male

DRUGS (10)
  1. POMALYST [Suspect]
     Active Substance: POMALIDOMIDE
     Indication: Plasma cell myeloma
     Dosage: FREQUENCY : DAILY;?
     Route: 048
     Dates: start: 20240831, end: 202505
  2. Wes-Phos [Concomitant]
  3. ROSUVASTATIN [Concomitant]
     Active Substance: ROSUVASTATIN
  4. VALACYCLOVIR [Concomitant]
     Active Substance: VALACYCLOVIR HYDROCHLORIDE
  5. AMLODIPINE [Concomitant]
     Active Substance: AMLODIPINE BESYLATE
  6. MIDODRINE [Concomitant]
     Active Substance: MIDODRINE
  7. TAMSULOSIN [Concomitant]
     Active Substance: TAMSULOSIN
  8. ONDANSETRON [Concomitant]
     Active Substance: ONDANSETRON
  9. DEXAMETHASONE [Concomitant]
     Active Substance: DEXAMETHASONE
  10. LOPERAMIDE [Concomitant]
     Active Substance: LOPERAMIDE

REACTIONS (1)
  - Neoplasm malignant [None]

NARRATIVE: CASE EVENT DATE: 20251026
